FAERS Safety Report 6768346-X (Version None)
Quarter: 2010Q2

REPORT INFORMATION
  Report Type: 
  Country: None (occurrence: None)
  Receive Date: 20100614
  Receipt Date: 20100608
  Transmission Date: 20101027
  Serious: Yes (Life-Threatening, Hospitalization)
  Sender: FDA-Public Use
  Company Number: DE-BRISTOL-MYERS SQUIBB COMPANY-15140130

PATIENT
  Age: 48 Year
  Sex: Male
  Weight: 88 kg

DRUGS (7)
  1. DASATINIB [Suspect]
     Indication: ACUTE MYELOID LEUKAEMIA
     Dates: start: 20100524, end: 20100605
  2. CYTARABINE [Suspect]
     Indication: ACUTE MYELOID LEUKAEMIA
     Dosage: 1 DF-1200 UNITS NOT SPECIFIED.
     Dates: start: 20100519, end: 20100523
  3. DAUNORUBICIN HCL [Suspect]
     Indication: ACUTE MYELOID LEUKAEMIA
  4. ACYCLOVIR [Concomitant]
  5. COTRIM [Concomitant]
  6. AMPICILLIN AND SULBACTAM [Concomitant]
  7. MICAFUNGIN SODIUM [Concomitant]

REACTIONS (2)
  - GENERAL PHYSICAL HEALTH DETERIORATION [None]
  - PYREXIA [None]
